FAERS Safety Report 7318955-4 (Version None)
Quarter: 2011Q1

REPORT INFORMATION
  Report Type: 
  Country: None (occurrence: None)
  Receive Date: 20110228
  Receipt Date: 20110216
  Transmission Date: 20110831
  Serious: Yes (Death)
  Sender: FDA-Public Use
  Company Number: GB-JNJFOC-20110205264

PATIENT
  Sex: Female
  Weight: 68 kg

DRUGS (2)
  1. REMICADE [Suspect]
     Indication: RHEUMATOID ARTHRITIS
     Route: 042
  2. PENICILLAMINE [Concomitant]
     Route: 065

REACTIONS (3)
  - CLOSTRIDIAL INFECTION [None]
  - PNEUMONIA [None]
  - PULMONARY HYPERTENSION [None]
